FAERS Safety Report 22848276 (Version 8)
Quarter: 2024Q1

REPORT INFORMATION
  Report Type: Report from Study
  Country: BR (occurrence: BR)
  Receive Date: 20230822
  Receipt Date: 20240127
  Transmission Date: 20240409
  Serious: Yes (Life-Threatening, Hospitalization, Other)
  Sender: FDA-Public Use
  Company Number: BR-002147023-NVSC2023BR128427

PATIENT
  Age: 40 Year
  Sex: Female
  Weight: 60 kg

DRUGS (10)
  1. KISQALI [Suspect]
     Active Substance: RIBOCICLIB
     Indication: Breast cancer
     Dosage: UNK, QD
     Route: 065
     Dates: start: 20230518
  2. KISQALI [Suspect]
     Active Substance: RIBOCICLIB
     Indication: Metastases to bone marrow
     Dosage: UNK
     Route: 065
     Dates: start: 202305
  3. KISQALI [Suspect]
     Active Substance: RIBOCICLIB
     Dosage: UNK
     Route: 065
  4. KISQALI [Suspect]
     Active Substance: RIBOCICLIB
     Dosage: 3 DOSAGE FORM, QD
     Route: 065
  5. KISQALI [Suspect]
     Active Substance: RIBOCICLIB
     Dosage: UNK
     Route: 065
  6. KISQALI [Suspect]
     Active Substance: RIBOCICLIB
     Dosage: UNK
     Route: 065
  7. KISQALI [Suspect]
     Active Substance: RIBOCICLIB
     Dosage: UNK
     Route: 065
  8. DEXAMETHASONE [Suspect]
     Active Substance: DEXAMETHASONE
     Indication: Rash
     Dosage: UNK
     Route: 065
  9. LORATADINE [Suspect]
     Active Substance: LORATADINE
     Indication: Rash
     Dosage: 1 DOSAGE FORM, QD (10 DAYS)
     Route: 065
  10. VENLAFAXINE HYDROCHLORIDE [Concomitant]
     Active Substance: VENLAFAXINE HYDROCHLORIDE
     Indication: Antidepressant therapy
     Dosage: UNK (STARTED LESS THAN A WEEK AGO)
     Route: 065

REACTIONS (76)
  - Pain [Not Recovered/Not Resolved]
  - Pneumonia bacterial [Recovered/Resolved]
  - Respiratory tract infection bacterial [Recovered/Resolved]
  - Second primary malignancy [Unknown]
  - Asthmatic crisis [Unknown]
  - Pelvic fracture [Not Recovered/Not Resolved]
  - Metastases to spine [Recovering/Resolving]
  - Metastases to bone marrow [Unknown]
  - Shock [Unknown]
  - Pneumonia [Recovered/Resolved]
  - Breast cancer [Recovering/Resolving]
  - Metastasis [Unknown]
  - Joint swelling [Recovered/Resolved]
  - Movement disorder [Not Recovered/Not Resolved]
  - Fractured sacrum [Not Recovered/Not Resolved]
  - Chest pain [Not Recovered/Not Resolved]
  - Swelling face [Not Recovered/Not Resolved]
  - Gait disturbance [Unknown]
  - Varicose vein [Not Recovered/Not Resolved]
  - Bone pain [Not Recovered/Not Resolved]
  - Decreased immune responsiveness [Unknown]
  - Anxiety [Unknown]
  - Pain in extremity [Not Recovered/Not Resolved]
  - Arthralgia [Not Recovered/Not Resolved]
  - Peripheral swelling [Not Recovered/Not Resolved]
  - Fatigue [Recovering/Resolving]
  - Influenza [Not Recovered/Not Resolved]
  - Dyspnoea [Recovered/Resolved]
  - Dyspnoea [Recovering/Resolving]
  - Miliaria [Recovered/Resolved]
  - Illness [Unknown]
  - Muscle atrophy [Unknown]
  - Menopausal disorder [Unknown]
  - Dysstasia [Unknown]
  - Inflammation [Unknown]
  - Tremor [Unknown]
  - Feeding disorder [Unknown]
  - Dyschezia [Recovered/Resolved]
  - Secretion discharge [Not Recovered/Not Resolved]
  - Irritability [Recovering/Resolving]
  - Hiccups [Not Recovered/Not Resolved]
  - Eye disorder [Not Recovered/Not Resolved]
  - Speech disorder [Unknown]
  - Hot flush [Not Recovered/Not Resolved]
  - Hyperhidrosis [Not Recovered/Not Resolved]
  - Psychiatric symptom [Unknown]
  - Somnolence [Not Recovered/Not Resolved]
  - Malaise [Unknown]
  - Insomnia [Recovered/Resolved]
  - Visual impairment [Unknown]
  - Weight decreased [Unknown]
  - Asthenia [Unknown]
  - Nasopharyngitis [Unknown]
  - Pyrexia [Recovered/Resolved]
  - Diarrhoea [Recovered/Resolved]
  - Diarrhoea [Recovered/Resolved]
  - Decreased appetite [Not Recovered/Not Resolved]
  - Rash [Recovering/Resolving]
  - Cough [Not Recovered/Not Resolved]
  - Burning sensation [Unknown]
  - Joint stiffness [Not Recovered/Not Resolved]
  - Nausea [Recovered/Resolved]
  - Abdominal discomfort [Recovered/Resolved]
  - Myopia [Unknown]
  - Strabismus [Unknown]
  - Amnesia [Unknown]
  - Alopecia [Recovering/Resolving]
  - Anaemia [Recovering/Resolving]
  - Swelling [Recovered/Resolved]
  - Platelet count abnormal [Recovering/Resolving]
  - Vascular pain [Not Recovered/Not Resolved]
  - Osteoporosis [Unknown]
  - Kniest dysplasia [Unknown]
  - Bone disorder [Unknown]
  - Product use in unapproved indication [Unknown]
  - Product dose omission in error [Unknown]

NARRATIVE: CASE EVENT DATE: 20230501
